FAERS Safety Report 9408060 (Version 1)
Quarter: 2013Q3

REPORT INFORMATION
  Report Type: Spontaneous
  Country: US (occurrence: US)
  Receive Date: 20130718
  Receipt Date: 20130718
  Transmission Date: 20140515
  Serious: Yes (Other)
  Sender: FDA-Public Use
  Company Number: US-BAYER-2013-086939

PATIENT
  Sex: Female

DRUGS (6)
  1. BAYER GENUINE ASPIRIN ORIGINAL STRENGTH [Suspect]
     Indication: INFLAMMATION
  2. BAYER GENUINE ASPIRIN ORIGINAL STRENGTH [Suspect]
     Indication: PAIN MANAGEMENT
  3. ALEVE CAPLET [Suspect]
     Indication: INFLAMMATION
     Dosage: 220 MG, BID
  4. ALEVE CAPLET [Suspect]
     Indication: PAIN MANAGEMENT
  5. MOTRIN [Suspect]
     Indication: INFLAMMATION
  6. MOTRIN [Suspect]
     Indication: PAIN MANAGEMENT

REACTIONS (2)
  - Gastric ulcer [None]
  - Abdominal discomfort [None]
